FAERS Safety Report 4997163-6 (Version None)
Quarter: 2006Q2

REPORT INFORMATION
  Report Type: 
  Country: None (occurrence: None)
  Receive Date: 20060508
  Receipt Date: 20060508
  Transmission Date: 20061013
  Serious: Yes (Disabling)
  Sender: FDA-Public Use
  Company Number: None

PATIENT
  Age: 63 Year
  Sex: Male
  Weight: 107.9561 kg

DRUGS (2)
  1. LIPITOR [Suspect]
     Indication: CORONARY ARTERY DISEASE
     Dates: start: 20050928, end: 20060322
  2. LIPITOR [Suspect]
     Indication: HYPERLIPIDAEMIA
     Dates: start: 20050928, end: 20060322

REACTIONS (4)
  - BLOOD CREATINE PHOSPHOKINASE INCREASED [None]
  - MUSCLE ENZYME INCREASED [None]
  - MYOGLOBIN BLOOD INCREASED [None]
  - MYOPATHY [None]
